FAERS Safety Report 4457792-5 (Version None)
Quarter: 2004Q3

REPORT INFORMATION
  Report Type: 
  Country: None (occurrence: None)
  Receive Date: 20040917
  Receipt Date: 20031117
  Transmission Date: 20050211
  Serious: Yes (Other)
  Sender: FDA-Public Use
  Company Number: NSADSS2002037184

PATIENT
  Age: 39 Year
  Sex: Female
  Weight: 61.2356 kg

DRUGS (5)
  1. TOPAMAX [Suspect]
     Dosage: 25 MG, 2 IN 1 DAY, ORAL
     Route: 048
     Dates: start: 20020930, end: 20021007
  2. WELLBUTRIN (BUPROPION HYDOCHLORIDE) [Concomitant]
  3. SYNTHROID (LEVOTHYOXINE SODIUM) [Concomitant]
  4. DEMEROL [Concomitant]
  5. PHENERGAN [Concomitant]

REACTIONS (2)
  - ANGLE CLOSURE GLAUCOMA [None]
  - MIGRAINE [None]
